FAERS Safety Report 6018480-7 (Version None)
Quarter: 2008Q4

REPORT INFORMATION
  Report Type: 
  Country: None (occurrence: None)
  Receive Date: 20081223
  Receipt Date: 20081202
  Transmission Date: 20090506
  Serious: Yes (Other)
  Sender: FDA-Public Use
  Company Number: US-PFIZER INC-2008093941

PATIENT
  Sex: Female
  Weight: 53.636 kg

DRUGS (4)
  1. NEURONTIN [Suspect]
     Dates: start: 20080101
  2. CHANTIX [Suspect]
     Dosage: EVERYDAY
     Route: 048
  3. ALL OTHER THERAPEUTIC PRODUCTS [Suspect]
     Indication: MULTIPLE SCLEROSIS
     Route: 048
  4. LEXAPRO [Concomitant]

REACTIONS (5)
  - DEPRESSION [None]
  - GASTROINTESTINAL DISORDER [None]
  - MULTIPLE SCLEROSIS [None]
  - PARAESTHESIA [None]
  - SOMNOLENCE [None]
